FAERS Safety Report 15156728 (Version 1)
Quarter: 2018Q3

REPORT INFORMATION
  Report Type: Spontaneous
  Country: US (occurrence: US)
  Receive Date: 20180717
  Receipt Date: 20180717
  Transmission Date: 20181010
  Serious: No
  Sender: FDA-Public Use
  Company Number: US-BAUSCH-BL-2018-015425

PATIENT
  Sex: Male

DRUGS (1)
  1. XIFAXAN [Suspect]
     Active Substance: RIFAXIMIN
     Indication: POUCHITIS
     Route: 065

REACTIONS (3)
  - Drug effective for unapproved indication [Unknown]
  - Insurance issue [Unknown]
  - Off label use [Unknown]
